FAERS Safety Report 9231465 (Version 1)
Quarter: 2013Q2

REPORT INFORMATION
  Report Type: Spontaneous
  Country: US (occurrence: US)
  Receive Date: 20130415
  Receipt Date: 20130415
  Transmission Date: 20140414
  Serious: Yes (Hospitalization)
  Sender: FDA-Public Use
  Company Number: US-GLAXOSMITHKLINE-A1019074A

PATIENT
  Age: 24 Year
  Sex: Female

DRUGS (4)
  1. LAMICTAL [Suspect]
     Indication: DEPRESSION
     Dosage: 200MG PER DAY
     Route: 048
     Dates: start: 2011
  2. OMEPRAZOLE [Concomitant]
  3. METFORMIN [Concomitant]
  4. UNSPECIFIED MEDICATIONS [Concomitant]

REACTIONS (10)
  - Suicidal ideation [Unknown]
  - Bronchospasm [Unknown]
  - Alopecia [Unknown]
  - Reflux laryngitis [Unknown]
  - Oesophageal disorder [Unknown]
  - Cough [Unknown]
  - Chronic sinusitis [Unknown]
  - Constipation [Recovered/Resolved]
  - Amenorrhoea [Unknown]
  - Depression [Not Recovered/Not Resolved]
